FAERS Safety Report 7620850-8 (Version None)
Quarter: 2011Q3

REPORT INFORMATION
  Report Type: 
  Country: None (occurrence: None)
  Receive Date: 20110719
  Receipt Date: 20110713
  Transmission Date: 20111222
  Serious: Yes (Other)
  Sender: FDA-Public Use
  Company Number: CHPA2011JP09342

PATIENT
  Age: 81 Year
  Sex: Male

DRUGS (1)
  1. PURSENNID [Suspect]
     Indication: CONSTIPATION
     Dosage: UNK, UNK
     Route: 048
     Dates: start: 20101001

REACTIONS (2)
  - DRUG ERUPTION [None]
  - GENERALISED ERYTHEMA [None]
